FAERS Safety Report 5567610-X (Version None)
Quarter: 2007Q4

REPORT INFORMATION
  Report Type: 
  Country: None (occurrence: None)
  Receive Date: 20071219
  Receipt Date: 20071207
  Transmission Date: 20080405
  Serious: Yes (Other)
  Sender: FDA-Public Use
  Company Number: US-PFIZER INC-2007104086

PATIENT
  Age: 75 Year
  Sex: Male

DRUGS (6)
  1. LYRICA [Suspect]
     Indication: DIABETES MELLITUS
  2. GABAPENTIN [Concomitant]
  3. RISPERIDONE [Concomitant]
  4. LISINOPRIL [Concomitant]
  5. HYDROCHLOROTHIAZIDE [Concomitant]
  6. ACETYLSALICYLIC ACID SRT [Concomitant]

REACTIONS (3)
  - ASTHENIA [None]
  - FATIGUE [None]
  - HYPERSOMNIA [None]
